FAERS Safety Report 18605011 (Version 1)
Quarter: 2020Q4

REPORT INFORMATION
  Report Type: Spontaneous
  Country: US (occurrence: US)
  Receive Date: 20201211
  Receipt Date: 20201211
  Transmission Date: 20210114
  Serious: Yes (Death, Hospitalization, Disabling, Other)
  Sender: FDA-Public Use
  Company Number: None

PATIENT
  Age: 61 Year
  Sex: Female
  Weight: 69.8 kg

DRUGS (3)
  1. CYCLOPHOSPHAMIDE. [Concomitant]
     Active Substance: CYCLOPHOSPHAMIDE
     Dates: start: 20200929, end: 20201020
  2. BRENTUXIMAB VEDOTIN [Suspect]
     Active Substance: BRENTUXIMAB VEDOTIN
     Indication: T-CELL LYMPHOMA
     Dosage: ?          OTHER FREQUENCY:Q21 DAYS;?
     Route: 041
     Dates: start: 20200929, end: 20201020
  3. DOXORUBICIN [Concomitant]
     Active Substance: DOXORUBICIN
     Dates: start: 20200929, end: 20201120

REACTIONS (11)
  - Electrolyte imbalance [None]
  - Mental status changes [None]
  - Hypoxia [None]
  - Brain oedema [None]
  - Posterior reversible encephalopathy syndrome [None]
  - Cerebellar microhaemorrhage [None]
  - Progressive multifocal leukoencephalopathy [None]
  - Pancytopenia [None]
  - Respiratory failure [None]
  - Renal impairment [None]
  - Febrile neutropenia [None]

NARRATIVE: CASE EVENT DATE: 20201105
